FAERS Safety Report 17161789 (Version 1)
Quarter: 2019Q4

REPORT INFORMATION
  Report Type: Spontaneous
  Country: GB (occurrence: GB)
  Receive Date: 20191217
  Receipt Date: 20191217
  Transmission Date: 20200122
  Serious: Yes (Other)
  Sender: FDA-Public Use
  Company Number: GB-TEVA-636282ACC

PATIENT
  Age: 35 Year
  Sex: Female
  Weight: 65 kg

DRUGS (5)
  1. METFORMIN [Concomitant]
     Active Substance: METFORMIN HYDROCHLORIDE
  2. MYCOPHENOLATE MOFETIL. [Suspect]
     Active Substance: MYCOPHENOLATE MOFETIL
     Indication: INTERSTITIAL LUNG DISEASE
     Dosage: 2 GRAM DAILY; TITRATED TO MAINTENENCE DOSE.
     Route: 048
     Dates: start: 20150518, end: 20151109
  3. PREDNISOLONE. [Concomitant]
     Active Substance: PREDNISOLONE
  4. CETRIZIN [Concomitant]
  5. FULTIUM-D3 [Concomitant]
     Active Substance: CHOLECALCIFEROL

REACTIONS (2)
  - Maternal exposure during pregnancy [Unknown]
  - Abortion spontaneous [Recovered/Resolved]

NARRATIVE: CASE EVENT DATE: 20151116
